FAERS Safety Report 19462999 (Version 1)
Quarter: 2021Q2

REPORT INFORMATION
  Report Type: Spontaneous
  Country: FR (occurrence: FR)
  Receive Date: 20210625
  Receipt Date: 20210625
  Transmission Date: 20210717
  Serious: Yes (Hospitalization, Other)
  Sender: FDA-Public Use
  Company Number: FR-ELI_LILLY_AND_COMPANY-FR202106006436

PATIENT
  Age: 69 Year
  Sex: Female
  Weight: 69 kg

DRUGS (6)
  1. OLANZAPINE. [Suspect]
     Active Substance: OLANZAPINE
     Indication: WRONG PATIENT
     Dosage: PRISE UNIQUE 10 MG (SINGLE INTAKE)
     Route: 048
     Dates: start: 20210427
  2. XANAX [Interacting]
     Active Substance: ALPRAZOLAM
     Indication: WRONG PATIENT
     Dosage: 0.25 MG (SINGLE INTAKE)
     Route: 048
     Dates: start: 20210427
  3. NOCTAMID [Interacting]
     Active Substance: LORMETAZEPAM
     Indication: WRONG PATIENT
     Dosage: PRISE UNIQUE 1 DF (SINGLE INTAKE)
     Route: 048
     Dates: start: 20210427
  4. THERALENE [Interacting]
     Active Substance: TRIMEPRAZINE
     Indication: WRONG PATIENT
     Dosage: PRISE UNIQUE 100 DF (SINGLE INTAKE)
     Route: 048
     Dates: start: 20210427
  5. TERCIAN [CYAMEMAZINE] [Interacting]
     Active Substance: CYAMEMAZINE
     Indication: WRONG PATIENT
     Dosage: PRISE UNIQUE 25 MG (SINGLE INTAKE)
     Route: 048
     Dates: start: 20210427
  6. IMOVANE [Interacting]
     Active Substance: ZOPICLONE
     Indication: WRONG PATIENT
     Dosage: PRISE UNIQUE
     Route: 048
     Dates: start: 20210427

REACTIONS (3)
  - Drug interaction [Recovered/Resolved]
  - Coma [Recovered/Resolved]
  - Wrong patient received product [Recovered/Resolved]

NARRATIVE: CASE EVENT DATE: 20210427
